FAERS Safety Report 6098012-8 (Version None)
Quarter: 2009Q1

REPORT INFORMATION
  Report Type: 
  Country: None (occurrence: None)
  Receive Date: 20090227
  Receipt Date: 20090226
  Transmission Date: 20090719
  Serious: Yes (Other)
  Sender: FDA-Public Use
  Company Number: SG-ASTRAZENECA-2009AP01376

PATIENT
  Age: 922 Month
  Sex: Male

DRUGS (4)
  1. CRESTOR [Suspect]
     Indication: HYPERLIPIDAEMIA
     Route: 048
     Dates: start: 20070401, end: 20071101
  2. CRESTOR [Suspect]
     Route: 048
     Dates: end: 20090217
  3. DIGOXIN [Concomitant]
     Indication: ATRIAL FIBRILLATION
  4. CYKLOKAPRON [Concomitant]
     Indication: HAEMATURIA

REACTIONS (3)
  - COMPARTMENT SYNDROME [None]
  - HAEMATURIA [None]
  - URINARY RETENTION [None]
